FAERS Safety Report 23461666 (Version 2)
Quarter: 2024Q1

REPORT INFORMATION
  Report Type: Spontaneous
  Country: TN (occurrence: TN)
  Receive Date: 20240131
  Receipt Date: 20240202
  Transmission Date: 20240410
  Serious: Yes (Other)
  Sender: FDA-Public Use
  Company Number: TN-MYLANLABS-2024M1009073

PATIENT
  Age: 23 Year
  Sex: Female

DRUGS (2)
  1. OXALIPLATIN [Suspect]
     Active Substance: OXALIPLATIN
     Indication: Adenocarcinoma of appendix
     Dosage: IV INFUSION OVER 2 HOURS ON DAY 1 AND DAY 15 EVERY 4 WEEKS
     Route: 042
     Dates: start: 201811
  2. CAPECITABINE [Suspect]
     Active Substance: CAPECITABINE
     Indication: Adenocarcinoma of appendix
     Dosage: UNK
     Route: 065
     Dates: start: 201811

REACTIONS (3)
  - Neurotoxicity [Recovering/Resolving]
  - Myelitis transverse [Recovered/Resolved]
  - Meningitis aseptic [Unknown]
